FAERS Safety Report 7860113-9 (Version None)
Quarter: 2011Q4

REPORT INFORMATION
  Report Type: 
  Country: None (occurrence: None)
  Receive Date: 20111027
  Receipt Date: 20111017
  Transmission Date: 20120403
  Serious: Yes (Hospitalization, Disabling)
  Sender: FDA-Public Use
  Company Number: FR-JNJFOC-20110909705

PATIENT
  Age: 74 Year
  Sex: Female

DRUGS (6)
  1. REMICADE [Suspect]
     Route: 042
     Dates: start: 20080415
  2. REMICADE [Suspect]
     Route: 042
     Dates: start: 20080421
  3. HUMIRA [Suspect]
     Indication: ENTEROCOLITIS HAEMORRHAGIC
     Dates: start: 20080528
  4. REMICADE [Suspect]
     Indication: COLITIS ULCERATIVE
     Route: 042
     Dates: start: 20080415
  5. IMURAN [Suspect]
     Indication: ENTEROCOLITIS HAEMORRHAGIC
     Dates: start: 20080415
  6. REMICADE [Suspect]
     Indication: ENTEROCOLITIS HAEMORRHAGIC
     Route: 042
     Dates: start: 20080421

REACTIONS (8)
  - CLOSTRIDIAL INFECTION [None]
  - HYPOAESTHESIA [None]
  - PARAESTHESIA [None]
  - TREATMENT FAILURE [None]
  - DIPLOPIA [None]
  - PANCREATITIS [None]
  - BALANCE DISORDER [None]
  - PAIN IN EXTREMITY [None]
